FAERS Safety Report 15620979 (Version 1)
Quarter: 2018Q4

REPORT INFORMATION
  Report Type: Spontaneous
  Country: US (occurrence: US)
  Receive Date: 20181115
  Receipt Date: 20181115
  Transmission Date: 20190205
  Serious: No
  Sender: FDA-Public Use
  Company Number: PHEH2018US047739

PATIENT
  Age: 54 Year
  Sex: Female

DRUGS (1)
  1. AFINITOR [Suspect]
     Active Substance: EVEROLIMUS
     Indication: BREAST CANCER METASTATIC
     Dosage: 10 MG, QD (ONCE DAILY)
     Route: 048
     Dates: start: 201810

REACTIONS (2)
  - Epistaxis [Unknown]
  - Nasal ulcer [Unknown]

NARRATIVE: CASE EVENT DATE: 201810
